FAERS Safety Report 4493410-8 (Version None)
Quarter: 2004Q4

REPORT INFORMATION
  Report Type: 
  Country: None (occurrence: None)
  Receive Date: 20041104
  Receipt Date: 20041029
  Transmission Date: 20050328
  Serious: Yes (Other)
  Sender: FDA-Public Use
  Company Number: GB-MERCK-0411GBR00016

PATIENT
  Age: 68 Year
  Sex: Male

DRUGS (7)
  1. VIOXX [Suspect]
     Indication: OSTEOARTHRITIS
     Route: 048
     Dates: start: 20010412, end: 20041005
  2. DIHYDROCODEINE [Concomitant]
     Indication: OSTEOARTHRITIS
     Route: 048
     Dates: start: 20000101
  3. ACETAMINOPHEN [Concomitant]
     Route: 065
  4. ACETAMINOPHEN [Concomitant]
     Indication: OSTEOARTHRITIS
     Route: 048
     Dates: start: 20010101
  5. BENZYDAMINE HYDROCHLORIDE [Concomitant]
     Indication: LICHEN PLANUS
     Route: 048
     Dates: start: 20011205
  6. LISINOPRIL [Concomitant]
     Indication: BLOOD PRESSURE INCREASED
     Route: 048
     Dates: start: 20011219
  7. AMLODIPINE MALEATE [Concomitant]
     Indication: BLOOD PRESSURE INCREASED
     Route: 048
     Dates: start: 20040201

REACTIONS (1)
  - LYMPHOPROLIFERATIVE DISORDER [None]
